FAERS Safety Report 14454732 (Version 1)
Quarter: 2018Q1

REPORT INFORMATION
  Report Type: Spontaneous
  Country: US (occurrence: US)
  Receive Date: 20180129
  Receipt Date: 20180129
  Transmission Date: 20180509
  Serious: Yes (Hospitalization)
  Sender: FDA-Public Use
  Company Number: US-DSJP-DSU-2017-137741

PATIENT

DRUGS (1)
  1. BENICAR HCT [Suspect]
     Active Substance: HYDROCHLOROTHIAZIDE\OLMESARTAN MEDOXOMIL
     Indication: HYPERTENSION
     Dosage: 40/12.5 MG, QD
     Dates: start: 20110306, end: 20111217

REACTIONS (3)
  - Inflammatory bowel disease [Unknown]
  - Sprue-like enteropathy [Recovering/Resolving]
  - Intestinal angioedema [Unknown]

NARRATIVE: CASE EVENT DATE: 20110903
